FAERS Safety Report 6414895-3 (Version None)
Quarter: 2009Q4

REPORT INFORMATION
  Report Type: 
  Country: None (occurrence: None)
  Receive Date: 20091026
  Receipt Date: 20090422
  Transmission Date: 20100525
  Serious: Yes (Death)
  Sender: FDA-Public Use
  Company Number: US-ABBOTT-09P-163-0569584-00

PATIENT
  Sex: Female
  Weight: 61.744 kg

DRUGS (3)
  1. LUPRON DEPOT [Suspect]
     Indication: ENDOMETRIOSIS
     Route: 050
     Dates: start: 20081124, end: 20090202
  2. LUPRON DEPOT [Suspect]
  3. LUPRON DEPOT [Suspect]
     Indication: ENDOMETRIOSIS
     Route: 050
     Dates: start: 20090310, end: 20090310

REACTIONS (6)
  - ANXIETY [None]
  - DEATH [None]
  - HEART RATE INCREASED [None]
  - HOT FLUSH [None]
  - HYPERVENTILATION [None]
  - ILL-DEFINED DISORDER [None]
